FAERS Safety Report 9949011 (Version 3)
Quarter: 2014Q1

REPORT INFORMATION
  Report Type: Spontaneous
  Country: JP (occurrence: JP)
  Receive Date: 20140304
  Receipt Date: 20140317
  Transmission Date: 20141002
  Serious: Yes (Hospitalization)
  Sender: FDA-Public Use
  Company Number: JP-NOVOPROD-401217

PATIENT
  Age: 69 Year
  Sex: Female
  Weight: 45 kg

DRUGS (6)
  1. LEVEMIR CHU [Suspect]
     Indication: TYPE 2 DIABETES MELLITUS
     Dosage: UNK
     Route: 058
     Dates: start: 200801
  2. LEVEMIR CHU [Suspect]
     Dosage: 6 IU, QD
     Route: 058
     Dates: start: 201201, end: 20120201
  3. LEVEMIR CHU [Suspect]
     Dosage: 6 IU
     Route: 058
     Dates: start: 20120309, end: 201203
  4. SITAGLIPTIN [Concomitant]
     Indication: TYPE 2 DIABETES MELLITUS
     Dosage: 50 MG, QD
     Route: 048
     Dates: start: 201201
  5. SITAGLIPTIN [Concomitant]
     Dosage: UNK
     Route: 065
     Dates: start: 20120413
  6. ATORVASTATIN [Concomitant]
     Indication: DYSLIPIDAEMIA
     Dosage: 10 MG, QD
     Route: 048
     Dates: start: 201201, end: 2012

REACTIONS (2)
  - Liver disorder [Recovered/Resolved]
  - Enterocolitis [Recovered/Resolved]
